FAERS Safety Report 21393983 (Version 1)
Quarter: 2022Q3

REPORT INFORMATION
  Report Type: Report from Study
  Country: US (occurrence: US)
  Receive Date: 20220930
  Receipt Date: 20220930
  Transmission Date: 20221026
  Serious: Yes (Other)
  Sender: FDA-Public Use
  Company Number: US-ABBVIE-4132931

PATIENT
  Sex: Female

DRUGS (4)
  1. HUMIRA [Suspect]
     Active Substance: ADALIMUMAB
     Indication: Rheumatoid arthritis
     Dosage: CITRATE FREE
     Route: 058
     Dates: end: 202209
  2. Pfizer/BioNTech covid vaccine [Concomitant]
     Indication: COVID-19 immunisation
     Dosage: 1 IN 1 ONCE, FIRST DOSE
     Route: 030
  3. Pfizer/BioNTech covid vaccine [Concomitant]
     Indication: COVID-19 immunisation
     Dosage: 1 IN 1 ONCE, SECOND DOSE
     Route: 030
  4. Pfizer/BioNTech covid vaccine [Concomitant]
     Indication: COVID-19 immunisation
     Dosage: 1 IN 1 ONCE, BOOSTER DOSE
     Route: 030

REACTIONS (1)
  - Foot deformity [Unknown]
